FAERS Safety Report 10019159 (Version 1)
Quarter: 2014Q1

REPORT INFORMATION
  Report Type: Spontaneous
  Country: IT (occurrence: IT)
  Receive Date: 20140318
  Receipt Date: 20140318
  Transmission Date: 20141002
  Serious: Yes (Hospitalization)
  Sender: FDA-Public Use
  Company Number: IT-BAYER-2014-037591

PATIENT
  Age: 19 Year
  Sex: Male

DRUGS (3)
  1. ASPIRINA [Suspect]
     Indication: BACK PAIN
     Dosage: DAILY DOSE 500 MG
     Route: 048
     Dates: start: 20130513, end: 20130513
  2. OKI [Concomitant]
     Indication: BACK PAIN
     Dosage: DAILY DOSE 80 MG
     Route: 048
     Dates: start: 20130211, end: 20130512
  3. TORA-DOL [Concomitant]
     Indication: BACK PAIN
     Dosage: UNK
     Dates: start: 20130511, end: 20130513

REACTIONS (1)
  - Lip swelling [Recovered/Resolved]
